FAERS Safety Report 22651391 (Version 2)
Quarter: 2023Q2

REPORT INFORMATION
  Report Type: Spontaneous
  Country: US (occurrence: US)
  Receive Date: 20230628
  Receipt Date: 20230629
  Transmission Date: 20230722
  Serious: No
  Sender: FDA-Public Use
  Company Number: US-002147023-NVSC2023US146842

PATIENT

DRUGS (1)
  1. INCLISIRAN [Suspect]
     Active Substance: INCLISIRAN
     Indication: Blood cholesterol increased
     Dosage: 150 MG (INITIAL DOSE AND THENNEXT DOSE AT 90 DAY)
     Route: 058

REACTIONS (1)
  - Drug ineffective [Unknown]
